FAERS Safety Report 4898747-6 (Version None)
Quarter: 2006Q1

REPORT INFORMATION
  Report Type: 
  Country: None (occurrence: None)
  Receive Date: 20060127
  Receipt Date: 20060119
  Transmission Date: 20060701
  Serious: Yes (Other)
  Sender: FDA-Public Use
  Company Number: 2006010388

PATIENT
  Age: 41 Year
  Sex: Female
  Weight: 80.7403 kg

DRUGS (3)
  1. NEURONTIN [Suspect]
     Indication: ANXIETY
     Dosage: 1200 MG (300 MG 4 IN 1 D) ORAL
     Route: 048
     Dates: start: 20051101
  2. SEROQUEL [Concomitant]
  3. LAMICTAL [Concomitant]

REACTIONS (6)
  - EYELID PTOSIS [None]
  - FACIAL PALSY [None]
  - HEADACHE [None]
  - MUSCLE TWITCHING [None]
  - MUSCULOSKELETAL DISORDER [None]
  - TREATMENT NONCOMPLIANCE [None]
